FAERS Safety Report 9164860 (Version 2)
Quarter: 2013Q2

REPORT INFORMATION
  Report Type: Spontaneous
  Country: US (occurrence: US)
  Receive Date: 20130315
  Receipt Date: 20130606
  Transmission Date: 20140414
  Serious: Yes (Other)
  Sender: FDA-Public Use
  Company Number: US-PFIZER INC-2013082616

PATIENT
  Age: 76 Year
  Sex: Female

DRUGS (1)
  1. CELEBREX [Suspect]
     Dosage: UNK

REACTIONS (7)
  - Drug hypersensitivity [Unknown]
  - Muscle spasms [Unknown]
  - Dysphagia [Unknown]
  - Sensory loss [Unknown]
  - Ankle fracture [Unknown]
  - Cough [Unknown]
  - Throat irritation [Unknown]
